FAERS Safety Report 9686227 (Version 1)
Quarter: 2013Q4

REPORT INFORMATION
  Report Type: Spontaneous
  Country: US (occurrence: US)
  Receive Date: 20131113
  Receipt Date: 20131113
  Transmission Date: 20140711
  Serious: Yes (Hospitalization)
  Sender: FDA-Public Use
  Company Number: PHEH2013US023570

PATIENT
  Sex: Female

DRUGS (10)
  1. LOSARTAN [Suspect]
  2. DIOVAN [Concomitant]
     Dosage: 320 MG, QD
  3. AMLODIPINE [Concomitant]
     Dosage: 2.5 MG, QD
  4. DILTIAZEM [Concomitant]
     Dosage: 120 MG, QD
  5. LOVASTATIN [Concomitant]
     Dosage: 20 MG, QD
  6. LATANOPROST [Concomitant]
     Dosage: 0.005 %, QD
  7. GLUCOSAMINE CHONDROITIN            /01430901/ [Concomitant]
     Dosage: 1500 MG, BID
  8. FISH OIL [Concomitant]
     Dosage: 1000 MG, BID
  9. BIOTIN [Concomitant]
     Dosage: 1000 MG, QD
  10. VITAMIN C [Concomitant]
     Dosage: 500 MG, QD

REACTIONS (1)
  - Cardiac disorder [Unknown]
